FAERS Safety Report 15766891 (Version 1)
Quarter: 2018Q4

REPORT INFORMATION
  Report Type: Spontaneous
  Country: IT (occurrence: IT)
  Receive Date: 20181227
  Receipt Date: 20181227
  Transmission Date: 20190205
  Serious: Yes (Death, Hospitalization, Other)
  Sender: FDA-Public Use
  Company Number: IT-AMGEN-ITASP2018178511

PATIENT
  Age: 61 Year
  Sex: Female

DRUGS (7)
  1. CARFILZOMIB [Suspect]
     Active Substance: CARFILZOMIB
     Dosage: 27 MG/M2, (20 MG/M2 EV ONLY DAY 1 AND DAY 2, IN CYCLE 1)
     Route: 042
     Dates: start: 2016, end: 2016
  2. DEXAMETHASONE. [Concomitant]
     Active Substance: DEXAMETHASONE
     Dosage: 40 MG, EVERY 2 DAYS
     Route: 042
     Dates: start: 2016, end: 2016
  3. CYCLOPHOSPHAMIDE. [Concomitant]
     Active Substance: CYCLOPHOSPHAMIDE
     Indication: PLASMA CELL MYELOMA
     Dosage: 300 MG/M2, QWK
     Route: 048
     Dates: start: 2016
  4. DARATUMUMAB [Concomitant]
     Active Substance: DARATUMUMAB
     Indication: PLASMA CELL MYELOMA
     Dosage: 16 MG/KG, QWK (900 MG) FOR SIX CYCLES
     Route: 042
     Dates: start: 201610
  5. CARFILZOMIB [Suspect]
     Active Substance: CARFILZOMIB
     Indication: PLASMA CELL MYELOMA
     Dosage: 36 MG/M2, (20 MG/M2 EV ONLY DAY 1 AND DAY 2, IN CYCLE 1)
     Route: 042
     Dates: start: 2016, end: 2016
  6. DEXAMETHASONE. [Concomitant]
     Active Substance: DEXAMETHASONE
     Indication: PLASMA CELL MYELOMA
     Dosage: 20 MG, EVERY 2 DAYS
     Route: 042
     Dates: start: 2016, end: 2016
  7. LENALIDOMIDE [Concomitant]
     Active Substance: LENALIDOMIDE
     Indication: PLASMA CELL MYELOMA
     Dosage: 25 MG, PER OS (DAYS 1-21) FOR FOUR CYCLES
     Route: 048
     Dates: start: 2016

REACTIONS (18)
  - Brain natriuretic peptide increased [Unknown]
  - Pleural effusion [Unknown]
  - Haemoptysis [Unknown]
  - Respiratory failure [Unknown]
  - Pulmonary oedema [Unknown]
  - Chest pain [Unknown]
  - Mitral valve incompetence [Unknown]
  - Pancytopenia [Unknown]
  - Pericardial effusion [Unknown]
  - Pneumonia [Unknown]
  - Acute kidney injury [Unknown]
  - Aplasia [Unknown]
  - Cardiomegaly [Unknown]
  - Pulmonary hypertension [Unknown]
  - Ejection fraction decreased [Unknown]
  - Multiple organ dysfunction syndrome [Fatal]
  - Off label use [Unknown]
  - Treatment failure [Unknown]

NARRATIVE: CASE EVENT DATE: 2016
